FAERS Safety Report 5274351-5 (Version None)
Quarter: 2007Q1

REPORT INFORMATION
  Report Type: 
  Country: None (occurrence: None)
  Receive Date: 20070323
  Receipt Date: 20070312
  Transmission Date: 20070707
  Serious: Yes (Hospitalization, Other)
  Sender: FDA-Public Use
  Company Number: US-PFIZER INC-2005140471

PATIENT
  Sex: Male

DRUGS (11)
  1. BEXTRA [Suspect]
     Indication: ANALGESIC EFFECT
     Dates: start: 20020701, end: 20020901
  2. BEXTRA [Suspect]
     Indication: OSTEOARTHRITIS
  3. LANOXIN [Concomitant]
  4. COREG [Concomitant]
  5. LIPITOR [Concomitant]
  6. PROPYLTHIOURACIL [Concomitant]
  7. ECOTRIN [Concomitant]
  8. ATARAX [Concomitant]
  9. MICRO-K [Concomitant]
  10. DEMADEX [Concomitant]
  11. ALDACTONE [Concomitant]

REACTIONS (2)
  - RENAL FAILURE ACUTE [None]
  - STEVENS-JOHNSON SYNDROME [None]
